FAERS Safety Report 5031556-6 (Version None)
Quarter: 2006Q2

REPORT INFORMATION
  Report Type: 
  Country: None (occurrence: None)
  Receive Date: 20060621
  Receipt Date: 20060223
  Transmission Date: 20061013
  Serious: Yes (Hospitalization)
  Sender: FDA-Public Use
  Company Number: US-GLAXOSMITHKLINE-A0594960A

PATIENT
  Age: 82 Year
  Sex: Female

DRUGS (2)
  1. AVANDIA [Suspect]
     Dosage: 8MG PER DAY
     Route: 048
     Dates: start: 20050801, end: 20060209
  2. GLYBURIDE [Concomitant]

REACTIONS (4)
  - NASOPHARYNGITIS [None]
  - OEDEMA [None]
  - OEDEMA PERIPHERAL [None]
  - SINUSITIS [None]
